FAERS Safety Report 4329897-0 (Version None)
Quarter: 2004Q1

REPORT INFORMATION
  Report Type: 
  Country: None (occurrence: None)
  Receive Date: 20040329
  Receipt Date: 20040112
  Transmission Date: 20041129
  Serious: No
  Sender: FDA-Public Use
  Company Number: 03P-163-0239489-00

PATIENT
  Age: 78 Year
  Sex: Female
  Weight: 56.6996 kg

DRUGS (13)
  1. HUMIRA [Suspect]
     Indication: RHEUMATOID ARTHRITIS
     Dosage: 40 MG, 1 IN 2 WK, SUBCUTANEOUS
     Route: 058
     Dates: start: 20031118, end: 20040113
  2. MECLIZINE [Concomitant]
  3. BOXETON [Concomitant]
  4. SPIRONOLACTONE [Concomitant]
  5. PREDNISONE [Concomitant]
  6. LEVOTHYROXINE SODIUM [Concomitant]
  7. POTASSIUM [Concomitant]
  8. CIMETIDINE HCL [Concomitant]
  9. TRIAMTERENE AND HYDROCHLOROTHIAZIDE [Concomitant]
  10. ESTROGENS CONJUGATED [Concomitant]
  11. DOXEPIN HCL [Concomitant]
  12. METHOTREXATE [Concomitant]
  13. OXYCOCET [Concomitant]

REACTIONS (3)
  - JOINT SWELLING [None]
  - PRURITUS [None]
  - RASH GENERALISED [None]
